FAERS Safety Report 4331164-6 (Version None)
Quarter: 2004Q2

REPORT INFORMATION
  Report Type: 
  Country: None (occurrence: None)
  Receive Date: 20040402
  Receipt Date: 20040319
  Transmission Date: 20050107
  Serious: Yes (Death)
  Sender: FDA-Public Use
  Company Number: A-US2003-02400

PATIENT
  Age: 50 Year
  Sex: Male
  Weight: 72.6 kg

DRUGS (4)
  1. TRACLEER [Suspect]
     Indication: PULMONARY HYPERTENSION
     Dosage: 62.5 MG, BID;  125 MG, BID;  62.5 MG
     Dates: start: 20020701, end: 20020801
  2. TRACLEER [Suspect]
     Indication: PULMONARY HYPERTENSION
     Dosage: 62.5 MG, BID;  125 MG, BID;  62.5 MG
     Dates: start: 20020801, end: 20030301
  3. TRACLEER [Suspect]
     Indication: PULMONARY HYPERTENSION
     Dosage: 62.5 MG, BID;  125 MG, BID;  62.5 MG
     Dates: start: 20030401
  4. WARFARIN SODIUM [Concomitant]

REACTIONS (2)
  - ANOREXIA [None]
  - HEPATIC ENZYME INCREASED [None]
